FAERS Safety Report 8574812 (Version 4)
Quarter: 2016Q2

REPORT INFORMATION
  Report Type: Report from Study
  Country: BR (occurrence: BR)
  Receive Date: 20120522
  Receipt Date: 20160510
  Transmission Date: 20160815
  Serious: Yes (Hospitalization)
  Sender: FDA-Public Use
  Company Number: PHHY2011BR116521

PATIENT
  Sex: Male
  Weight: 96 kg

DRUGS (4)
  1. SANDOSTATIN LAR DEPOT [Suspect]
     Active Substance: OCTREOTIDE ACETATE
     Dosage: 30 MG, UNK
     Route: 065
  2. ENALAPRIL [Concomitant]
     Active Substance: ENALAPRIL
     Indication: HYPERTENSION
     Dosage: 2 DF, QD
     Route: 048
  3. SANDOSTATIN LAR DEPOT [Suspect]
     Active Substance: OCTREOTIDE ACETATE
     Indication: PITUITARY TUMOUR
     Dosage: 10 MG, QMO, MONTHLY
     Route: 065
     Dates: start: 20111007
  4. SANDOSTATIN LAR DEPOT [Suspect]
     Active Substance: OCTREOTIDE ACETATE
     Indication: ACROMEGALY
     Dosage: 20 MG, QMO, MONTHLY
     Route: 065
     Dates: start: 201105, end: 201107

REACTIONS (15)
  - Arthralgia [Unknown]
  - Malaise [Recovered/Resolved]
  - Hormone level abnormal [Recovered/Resolved]
  - Insomnia [Recovering/Resolving]
  - Nodule [Not Recovered/Not Resolved]
  - Discomfort [Unknown]
  - Heart alternation [Unknown]
  - Dyspnoea [Recovering/Resolving]
  - Blood growth hormone increased [Unknown]
  - Pain [Recovered/Resolved]
  - Dizziness [Unknown]
  - Swelling [Recovered/Resolved]
  - Head and neck cancer [Not Recovered/Not Resolved]
  - Pain in extremity [Recovered/Resolved]
  - Movement disorder [Unknown]
